FAERS Safety Report 4605052-1 (Version None)
Quarter: 2005Q1

REPORT INFORMATION
  Report Type: 
  Country: None (occurrence: None)
  Receive Date: 20050311
  Receipt Date: 20050228
  Transmission Date: 20050727
  Serious: Yes (Disabling)
  Sender: FDA-Public Use
  Company Number: GB-BRISTOL-MYERS SQUIBB COMPANY-12878245

PATIENT
  Age: 59 Year
  Sex: Female

DRUGS (4)
  1. HYDROXYCARBAMIDE [Suspect]
     Indication: CHRONIC MYELOID LEUKAEMIA
     Route: 048
     Dates: start: 19960529
  2. RIFAMPICIN [Concomitant]
     Route: 048
     Dates: start: 20030901
  3. ALLOPURINOL [Concomitant]
     Route: 048
  4. PASINAH [Concomitant]
     Route: 048
     Dates: start: 20030901

REACTIONS (1)
  - PYODERMA GANGRENOSUM [None]
